FAERS Safety Report 11611793 (Version 3)
Quarter: 2016Q3

REPORT INFORMATION
  Report Type: Report from Study
  Country: DE (occurrence: DE)
  Receive Date: 20151008
  Receipt Date: 20160812
  Transmission Date: 20161109
  Serious: Yes (Hospitalization, Disabling, Other)
  Sender: FDA-Public Use
  Company Number: DE-ABBVIE-15K-062-1476214-00

PATIENT
  Age: 65 Year
  Sex: Male

DRUGS (5)
  1. BETADERMIC [Concomitant]
     Indication: PRODUCT USED FOR UNKNOWN INDICATION
     Dosage: AS REQUIRED
  2. SIMVASTATIN HORMOSAN [Concomitant]
     Indication: PRODUCT USED FOR UNKNOWN INDICATION
  3. CLOPIDOGREL [Concomitant]
     Active Substance: CLOPIDOGREL BISULFATE
     Indication: PRODUCT USED FOR UNKNOWN INDICATION
  4. HUMIRA [Suspect]
     Active Substance: ADALIMUMAB
     Indication: PSORIASIS
     Route: 058
     Dates: start: 2009, end: 201508
  5. HUMIRA [Suspect]
     Active Substance: ADALIMUMAB
     Route: 058
     Dates: end: 20160705

REACTIONS (3)
  - Angina pectoris [Recovered/Resolved]
  - Heart valve incompetence [Recovered/Resolved]
  - Aneurysm [Recovered/Resolved]

NARRATIVE: CASE EVENT DATE: 20150921
